FAERS Safety Report 8560396-6 (Version None)
Quarter: 2012Q3

REPORT INFORMATION
  Report Type: 
  Country: None (occurrence: None)
  Receive Date: 20120802
  Receipt Date: 20120725
  Transmission Date: 20120928
  Serious: Yes (Hospitalization, Disabling, Other)
  Sender: FDA-Public Use
  Company Number: US-ALLERGAN-1210238US

PATIENT
  Age: 93 Year
  Sex: Female

DRUGS (4)
  1. PLAVIX [Concomitant]
     Indication: CAROTID ARTERY STENOSIS
     Dosage: UNK
     Dates: start: 20060101
  2. ZOCOR [Concomitant]
  3. BOTULINUM TOXIN TYPE A [Suspect]
     Indication: MUSCLE ATROPHY
     Dosage: UNK
     Dates: start: 20100101, end: 20100101
  4. TOPROL-XL [Concomitant]
     Indication: HYPERTENSION

REACTIONS (3)
  - RESPIRATORY FAILURE [None]
  - PNEUMONIA [None]
  - NEUROMYOPATHY [None]
